FAERS Safety Report 10241837 (Version 1)
Quarter: 2014Q1

REPORT INFORMATION
  Report Type: Spontaneous
  Country: US (occurrence: None)
  Receive Date: 20140306
  Receipt Date: 20140306
  Transmission Date: 20141002
  Serious: Yes (Other)
  Sender: FDA-Public Use
  Company Number: 163-21880-13104147

PATIENT
  Age: 82 Year
  Sex: Male
  Weight: 79.7 kg

DRUGS (15)
  1. REVLIMID (LENALIDOMIDE) (10 MILLIGRAM, CAPSULES) [Suspect]
     Indication: PLASMA CELL MYELOMA
     Route: 048
     Dates: start: 201307, end: 2013
  2. ACETAMINOPHEN (PARACETAMOL) (UNKNOWN) (PARACETAMOL) [Concomitant]
  3. ACYCLOVIR (ACICLOVIR) (TABLETS) [Concomitant]
  4. ASPIRIN (ACETYLSALICYLIC ACID) (UNKNOWN) (ACETYLSALICYLIC ACID) [Concomitant]
  5. ATORVASTATIN (ATORVASTATIN) (UNKNOWN) [Concomitant]
  6. CARVEDILOL (CARVEDILOL) (UNKNOWN) [Concomitant]
  7. CLOPIDOGREL (CLOPIDOGREL) (UNKNOWN) [Concomitant]
  8. FUROSEMIDE (FUROSEMIDE) (TABLETS) [Concomitant]
  9. HALOBETASOL PROPIONATE (ULOBETASOL PROPIONATE) (UNKNOWN) [Concomitant]
  10. NITROGLYCERIN (GLYCERYL TRINITRATE) (UNKNOWN) [Concomitant]
  11. OMEPRAZOLE (OMEPRAZOLE) (TABLETS) [Concomitant]
  12. POTASSIUM BICARBONATE + CHLORIDE (POTASSIUM BICARBONATE) (TABLETS) [Concomitant]
  13. PROCHLORPERAZINE (PROCHLORPERAZINE) (TABLETS) [Concomitant]
  14. SOLIFENACIN (SOLIFENACIN) (UNKNOWN) [Concomitant]
  15. TRIAMCINOLONE ACETONIDE (TRIAMCINOLONE ACETONIDE) (UNKNOWN) [Concomitant]

REACTIONS (2)
  - Pancytopenia [None]
  - Platelet count decreased [None]
